FAERS Safety Report 6359493-5 (Version None)
Quarter: 2009Q3

REPORT INFORMATION
  Report Type: 
  Country: None (occurrence: None)
  Receive Date: 20090917
  Receipt Date: 20090813
  Transmission Date: 20100115
  Serious: No
  Sender: FDA-Public Use
  Company Number: US-BAYER-200822314NA

PATIENT
  Age: 56 Year
  Sex: Male

DRUGS (5)
  1. NEXAVAR [Suspect]
     Indication: RENAL CANCER METASTATIC
     Route: 048
     Dates: start: 20080428, end: 20080503
  2. NEXAVAR [Suspect]
     Dosage: UNIT DOSE: 200 MG
     Route: 048
     Dates: start: 20080501
  3. THYROID MEDICINE NOS [Concomitant]
  4. BLOOD PRESSURE MEDICINE NOS [Concomitant]
  5. PAXIL [Concomitant]

REACTIONS (7)
  - BLISTER [None]
  - DIARRHOEA [None]
  - DYSPEPSIA [None]
  - FATIGUE [None]
  - MUSCLE TIGHTNESS [None]
  - PARAESTHESIA [None]
  - RASH GENERALISED [None]
